FAERS Safety Report 4409530-X (Version None)
Quarter: 2004Q3

REPORT INFORMATION
  Report Type: 
  Country: None (occurrence: None)
  Receive Date: 20040723
  Receipt Date: 20040713
  Transmission Date: 20050211
  Serious: Yes (Hospitalization, Other)
  Sender: FDA-Public Use
  Company Number: US-2004-028710

PATIENT
  Age: 64 Year
  Sex: Male

DRUGS (3)
  1. LEUKINE (SARGRAMOSTIUM) INJECTION [Suspect]
     Indication: METASTATIC RENAL CELL CARCINOMA
     Dosage: 450 UG, 1XDAY, SUBCUTANEOUS
     Route: 058
  2. PEG-INTRON [Suspect]
     Indication: METASTATIC RENAL CELL CARCINOMA
     Dosage: 200 UG, SUBCUTANEOUS
     Route: 058
     Dates: start: 20040609
  3. PROLEUKIN [Suspect]
     Indication: METASTATIC RENAL CELL CARCINOMA
     Dosage: 9 MIU, 1X/DAY, SUBCUTANEOUS
     Route: 058
     Dates: end: 20040611

REACTIONS (7)
  - BLOOD ALBUMIN DECREASED [None]
  - BLOOD CALCIUM DECREASED [None]
  - BLOOD POTASSIUM INCREASED [None]
  - BLOOD SODIUM DECREASED [None]
  - DEHYDRATION [None]
  - HAEMOGLOBIN DECREASED [None]
  - WHITE BLOOD CELL COUNT INCREASED [None]
